FAERS Safety Report 4582468-3 (Version None)
Quarter: 2005Q1

REPORT INFORMATION
  Report Type: 
  Country: None (occurrence: None)
  Receive Date: 20050211
  Receipt Date: 20050211
  Transmission Date: 20050727
  Serious: Yes (Life-Threatening, Hospitalization)
  Sender: FDA-Public Use
  Company Number: None

PATIENT
  Age: 19 Year
  Sex: Female
  Weight: 56.6996 kg

DRUGS (1)
  1. ADDERALL 20 [Suspect]
     Indication: ATTENTION DEFICIT/HYPERACTIVITY DISORDER
     Dosage: 20 MG    Q.D.     ORAL
     Route: 048
     Dates: start: 20040915, end: 20050202

REACTIONS (4)
  - CONVULSION [None]
  - HYPERVENTILATION [None]
  - RESPIRATORY FAILURE [None]
  - TACHYCARDIA [None]
